FAERS Safety Report 7578538-8 (Version None)
Quarter: 2011Q2

REPORT INFORMATION
  Report Type: 
  Country: None (occurrence: None)
  Receive Date: 20110628
  Receipt Date: 20110621
  Transmission Date: 20111010
  Serious: Yes (Death)
  Sender: FDA-Public Use
  Company Number: FR-CEPHALON-2011001994

PATIENT
  Age: 87 Year
  Sex: Female

DRUGS (3)
  1. DURAGESIC-100 [Concomitant]
     Indication: PAIN IN EXTREMITY
     Route: 062
  2. FENTANYL CITRATE [Suspect]
     Indication: PAIN IN EXTREMITY
     Route: 060
  3. ABSTRAL [Concomitant]
     Indication: PAIN IN EXTREMITY
     Dates: start: 20110422

REACTIONS (2)
  - DRUG INEFFECTIVE FOR UNAPPROVED INDICATION [None]
  - ARTERITIS [None]
